FAERS Safety Report 5042761-7 (Version None)
Quarter: 2006Q2

REPORT INFORMATION
  Report Type: 
  Country: None (occurrence: None)
  Receive Date: 20060627
  Receipt Date: 20060616
  Transmission Date: 20061013
  Serious: Yes (Hospitalization)
  Sender: FDA-Public Use
  Company Number: 2006-01447

PATIENT
  Age: 56 Year
  Sex: Male
  Weight: 92.6 kg

DRUGS (7)
  1. VELCADE [Suspect]
     Indication: MULTIPLE MYELOMA
     Dosage: 1.30 MG/M2; INTRAVENOUS
     Route: 042
     Dates: start: 20060221
  2. CAELYX (CAELYX) (DOXORUBICIN HYDROCHLORIDE) INJECTION [Suspect]
     Indication: MULTIPLE MYELOMA
     Dosage: 30.00 MG/M2, INTRAVENOUS
     Route: 042
     Dates: start: 20060224, end: 20060523
  3. TEGRETOL [Concomitant]
  4. CARDIO ASPIRINA (ACETYLSALICYLIC ACID) [Concomitant]
  5. ZANTAC [Concomitant]
  6. DEXCHLORPHENIRAMINE MALEATE [Concomitant]
  7. LITICAN (ALIZAPRIDE) [Concomitant]

REACTIONS (2)
  - BURSITIS [None]
  - PALMAR-PLANTAR ERYTHRODYSAESTHESIA SYNDROME [None]
